FAERS Safety Report 5322876-6 (Version None)
Quarter: 2007Q2

REPORT INFORMATION
  Report Type: 
  Country: None (occurrence: None)
  Receive Date: 20070511
  Receipt Date: 20070502
  Transmission Date: 20071010
  Serious: Yes (Hospitalization, Other)
  Sender: FDA-Public Use
  Company Number: JP-PFIZER INC-2007036180

PATIENT
  Sex: Male
  Weight: 57.6 kg

DRUGS (4)
  1. AZULFIDINE EN-TABS [Suspect]
     Indication: RHEUMATOID ARTHRITIS
     Dates: start: 19981101, end: 20070316
  2. RIMATIL [Suspect]
     Indication: RHEUMATOID ARTHRITIS
     Dates: start: 20070309, end: 20070316
  3. RHEUMATREX [Suspect]
     Indication: RHEUMATOID ARTHRITIS
     Dates: start: 19990101, end: 20060301
  4. PREDNISOLONE [Concomitant]

REACTIONS (6)
  - ERYTHEMA [None]
  - GAIT DISTURBANCE [None]
  - HELICOBACTER INFECTION [None]
  - INTERSTITIAL LUNG DISEASE [None]
  - THROMBOCYTOPENIA [None]
  - TOXIC EPIDERMAL NECROLYSIS [None]
